FAERS Safety Report 6992553-4 (Version None)
Quarter: 2010Q3

REPORT INFORMATION
  Report Type: 
  Country: None (occurrence: None)
  Receive Date: 20100915
  Receipt Date: 20100907
  Transmission Date: 20110219
  Serious: Yes (Other)
  Sender: FDA-Public Use
  Company Number: TUK2010A00251

PATIENT
  Sex: Female

DRUGS (2)
  1. ACTOS [Suspect]
     Indication: PRODUCT USED FOR UNKNOWN INDICATION
  2. COMBINED ORAL CONTRACEPTIVEL CONTRACEPTIVE NOS) [Suspect]
     Indication: PRODUCT USED FOR UNKNOWN INDICATION

REACTIONS (2)
  - DRUG INTERACTION [None]
  - PREGNANCY ON CONTRACEPTIVE [None]
